FAERS Safety Report 24737502 (Version 1)
Quarter: 2024Q4

REPORT INFORMATION
  Report Type: Spontaneous
  Country: US (occurrence: US)
  Receive Date: 20241216
  Receipt Date: 20241216
  Transmission Date: 20250114
  Serious: Yes (Other)
  Sender: ACCORD
  Company Number: US-Accord-457282

PATIENT
  Age: 34 Year
  Sex: Female

DRUGS (5)
  1. MYCOPHENOLATE MOFETIL [Suspect]
     Active Substance: MYCOPHENOLATE MOFETIL
     Indication: Chorioretinitis
     Dosage: MYCOPHENOLATE MOFETIL TREATMENT WAS INITIATED AND TITRATED UP TO 1500 MG TWICE A DAY.
  2. PREDNISONE [Concomitant]
     Active Substance: PREDNISONE
     Indication: Chorioretinitis
     Dosage: ON A 10 MG/WEEK TAPER
  3. TRIAMCINOLONE ACETONIDE [Concomitant]
     Active Substance: TRIAMCINOLONE ACETONIDE
     Indication: Chorioretinitis
     Dosage: INJECTION
  4. FLUOCINOLONE ACETONIDE [Concomitant]
     Active Substance: FLUOCINOLONE ACETONIDE
     Indication: Chorioretinitis
     Dosage: INTRAVITREAL IMPLANT
  5. DEXAMETHASONE [Concomitant]
     Active Substance: DEXAMETHASONE
     Indication: Chorioretinitis
     Dosage: INTRAVITREAL IMPLANT

REACTIONS (4)
  - Off label use [Unknown]
  - Lymphoproliferative disorder [Recovering/Resolving]
  - B-cell lymphoma [Recovering/Resolving]
  - Ocular lymphoma [Recovering/Resolving]
